FAERS Safety Report 6382939-3 (Version None)
Quarter: 2009Q3

REPORT INFORMATION
  Report Type: 
  Country: None (occurrence: None)
  Receive Date: 20090930
  Receipt Date: 20090917
  Transmission Date: 20100115
  Serious: Yes (Life-Threatening, Hospitalization)
  Sender: FDA-Public Use
  Company Number: GB-PFIZER INC-2009270131

PATIENT
  Age: 57 Year

DRUGS (3)
  1. SULFASALAZINE [Suspect]
     Indication: RHEUMATOID ARTHRITIS
     Dosage: 500 MG, 3X/DAY
     Route: 048
     Dates: start: 20090708, end: 20090901
  2. LEVOTHYROXINE SODIUM [Concomitant]
  3. SYMBICORT [Concomitant]

REACTIONS (2)
  - LIVER FUNCTION TEST ABNORMAL [None]
  - NEUTROPENIA [None]
